FAERS Safety Report 6832842-7 (Version None)
Quarter: 2010Q3

REPORT INFORMATION
  Report Type: 
  Country: None (occurrence: None)
  Receive Date: 20100712
  Receipt Date: 20070314
  Transmission Date: 20110219
  Serious: No
  Sender: FDA-Public Use
  Company Number: US-PFIZER INC-2007022425

PATIENT
  Sex: Female
  Weight: 56.7 kg

DRUGS (10)
  1. CHANTIX [Suspect]
     Indication: SMOKING CESSATION THERAPY
     Dates: start: 20070302, end: 20070301
  2. LIPITOR [Concomitant]
  3. PREMARIN [Concomitant]
  4. PROMETRIUM [Concomitant]
  5. FOLIC ACID [Concomitant]
  6. VITAMINS [Concomitant]
  7. LOVAZA [Concomitant]
  8. CALCIUM [Concomitant]
  9. WELLBUTRIN [Concomitant]
  10. ANTI-SMOKING AGENTS [Concomitant]

REACTIONS (10)
  - DYSGEUSIA [None]
  - DYSPNOEA [None]
  - FLATULENCE [None]
  - HEADACHE [None]
  - HEART RATE INCREASED [None]
  - INSOMNIA [None]
  - NAUSEA [None]
  - NIGHT SWEATS [None]
  - RETCHING [None]
  - TINNITUS [None]
